FAERS Safety Report 22620862 (Version 1)
Quarter: 2023Q2

REPORT INFORMATION
  Report Type: Spontaneous
  Country: US (occurrence: None)
  Receive Date: 20230617
  Receipt Date: 20230617
  Transmission Date: 20230721
  Serious: Yes (Hospitalization)
  Sender: FDA-Public Use
  Company Number: None

PATIENT
  Age: 36 Year
  Sex: Female
  Weight: 157.5 kg

DRUGS (4)
  1. ERBITUX [Suspect]
     Active Substance: CETUXIMAB
     Indication: Colon cancer stage IV
     Dosage: OTHER QUANTITY : 1 INFUSION;?OTHER FREQUENCY : OVER 2 HOURS;?
     Route: 042
     Dates: start: 20230606, end: 20230606
  2. IRINOTECAN [Concomitant]
     Active Substance: IRINOTECAN
  3. LEUCOVORIN [Concomitant]
     Active Substance: LEUCOVORIN
  4. FLUOROURACIL [Concomitant]
     Active Substance: FLUOROURACIL

REACTIONS (10)
  - Pruritus [None]
  - Rash [None]
  - Acne [None]
  - Rash [None]
  - Rash [None]
  - Rash [None]
  - Blister [None]
  - Skin ulcer [None]
  - Pain [None]
  - Skin exfoliation [None]

NARRATIVE: CASE EVENT DATE: 20230610
